FAERS Safety Report 5046105-6 (Version None)
Quarter: 2006Q3

REPORT INFORMATION
  Report Type: 
  Country: None (occurrence: None)
  Receive Date: 20060710
  Receipt Date: 20060501
  Transmission Date: 20061208
  Serious: Yes (Life-Threatening, Hospitalization, Other)
  Sender: FDA-Public Use
  Company Number: US-MERCK-0605USA00531

PATIENT
  Age: 83 Year
  Sex: Female
  Weight: 86 kg

DRUGS (6)
  1. ZOCOR [Suspect]
     Indication: LIPIDS INCREASED
     Route: 048
     Dates: start: 20040101, end: 20060301
  2. LEVATOL [Concomitant]
     Route: 065
  3. NORVASC [Concomitant]
     Route: 065
  4. PRILOSEC [Concomitant]
     Route: 065
  5. PRINZIDE [Concomitant]
     Route: 048
  6. TOPROL-XL [Concomitant]
     Route: 065

REACTIONS (7)
  - ASPARTATE AMINOTRANSFERASE INCREASED [None]
  - HAEMODIALYSIS [None]
  - HEPATIC FAILURE [None]
  - HEPATOTOXICITY [None]
  - RENAL FAILURE ACUTE [None]
  - RHABDOMYOLYSIS [None]
  - WRONG TECHNIQUE IN DRUG USAGE PROCESS [None]
